FAERS Safety Report 16052549 (Version 1)
Quarter: 2019Q1

REPORT INFORMATION
  Report Type: Spontaneous
  Country: US (occurrence: US)
  Receive Date: 20190308
  Receipt Date: 20190308
  Transmission Date: 20190418
  Serious: Yes (Disabling)
  Sender: FDA-Public Use
  Company Number: US-ASTRAZENECA-2019SE32337

PATIENT
  Age: 60 Year
  Sex: Female
  Weight: 95.9 kg

DRUGS (4)
  1. IMFINZI [Suspect]
     Active Substance: DURVALUMAB
     Indication: PROPHYLAXIS
     Dosage: 10.0MG/KG UNKNOWN
     Route: 042
     Dates: start: 20181212
  2. LISINOPRIL. [Suspect]
     Active Substance: LISINOPRIL
     Indication: HYPERTENSION
     Dosage: 20.0MG UNKNOWN
     Route: 048
  3. SIMVASTATIN. [Concomitant]
     Active Substance: SIMVASTATIN
     Indication: BLOOD CHOLESTEROL INCREASED
     Dosage: 80.0MG UNKNOWN
  4. IMFINZI [Suspect]
     Active Substance: DURVALUMAB
     Indication: NON-SMALL CELL LUNG CANCER STAGE III
     Dosage: 10.0MG/KG UNKNOWN
     Route: 042
     Dates: start: 20181212

REACTIONS (1)
  - Pain in extremity [Not Recovered/Not Resolved]
